FAERS Safety Report 13699181 (Version 1)
Quarter: 2017Q2

REPORT INFORMATION
  Report Type: Spontaneous
  Country: NL (occurrence: NL)
  Receive Date: 20170628
  Receipt Date: 20170628
  Transmission Date: 20170830
  Serious: Yes (Congenital Anomaly)
  Sender: FDA-Public Use
  Company Number: NL-ABBVIE-17P-114-2023421-00

PATIENT
  Sex: Male

DRUGS (1)
  1. DEPAKINE CHRONO [Suspect]
     Active Substance: VALPROATE SODIUM
     Indication: MATERNAL EXPOSURE TIMING UNSPECIFIED
     Route: 064

REACTIONS (6)
  - Aphasia [Unknown]
  - Benign congenital hypotonia [Unknown]
  - Autism spectrum disorder [Unknown]
  - Dyslexia [Unknown]
  - Congenital neurological disorder [Unknown]
  - Foetal exposure during pregnancy [Unknown]
